FAERS Safety Report 10512053 (Version 2)
Quarter: 2017Q1

REPORT INFORMATION
  Report Type: Spontaneous
  Country: AU (occurrence: AU)
  Receive Date: 20141010
  Receipt Date: 20170118
  Transmission Date: 20170428
  Serious: Yes (Hospitalization)
  Sender: FDA-Public Use
  Company Number: AU-BAUSCH-BL-2014-006340

PATIENT
  Age: 54 Year
  Sex: Male

DRUGS (4)
  1. CEFTRIAXONE. [Suspect]
     Active Substance: CEFTRIAXONE
     Indication: GANGRENE
     Route: 065
  2. TICARCILLIN/CLAVULANATE POTASSIUM [Suspect]
     Active Substance: CLAVULANATE POTASSIUM\TICARCILLIN
     Indication: GANGRENE
     Route: 065
  3. VANCOMYCIN [Suspect]
     Active Substance: VANCOMYCIN
     Indication: GANGRENE
     Route: 065
  4. METRONIDAZOLE. [Suspect]
     Active Substance: METRONIDAZOLE
     Indication: GANGRENE
     Route: 065

REACTIONS (1)
  - Tubulointerstitial nephritis [Unknown]
